FAERS Safety Report 8394471-6 (Version None)
Quarter: 2012Q2

REPORT INFORMATION
  Report Type: 
  Country: None (occurrence: None)
  Receive Date: 20120530
  Receipt Date: 20080502
  Transmission Date: 20120825
  Serious: No
  Sender: FDA-Public Use
  Company Number: US-JNJCH-2008011089

PATIENT
  Sex: Female

DRUGS (8)
  1. VICODIN [Suspect]
     Indication: PAIN
  2. DARVOCET [Suspect]
     Indication: PAIN
  3. DARVOCET [Suspect]
     Dosage: 2 DOSE (S)
  4. IBUPROFEN [Suspect]
     Indication: PAIN
     Dosage: 200 MG
     Route: 065
  5. EXTRA STRENGTH TYLENOL PM [Suspect]
     Dosage: UNSPECIFIED
  6. PERCOCET [Suspect]
     Indication: PAIN
     Dosage: 3 DOSE (S)
  7. CHANTIX [Suspect]
     Indication: SMOKING CESSATION THERAPY
     Dates: start: 20071101
  8. FLEXERIL [Suspect]
     Indication: PAIN
     Dosage: 1 DOSE (S)
     Route: 065

REACTIONS (3)
  - DRUG ADMINISTRATION ERROR [None]
  - DRUG INTERACTION [None]
  - DRUG INEFFECTIVE [None]
